FAERS Safety Report 4617827-3 (Version None)
Quarter: 2005Q1

REPORT INFORMATION
  Report Type: 
  Country: None (occurrence: None)
  Receive Date: 20050322
  Receipt Date: 20050317
  Transmission Date: 20050727
  Serious: Yes (Hospitalization)
  Sender: FDA-Public Use
  Company Number: 200510067BFR

PATIENT
  Age: 34 Year
  Sex: Male

DRUGS (10)
  1. MOXIFLOXACIN HYDROCHLORIDE [Suspect]
     Indication: TUBERCULOSIS
     Dosage: 400 MG, TOTAL DAILY, ORAL
     Route: 048
     Dates: start: 20041202, end: 20041203
  2. ACUPAN [Suspect]
     Dosage: 3 DF, TOTAL DAILY, INTRAVENOUS
     Route: 042
     Dates: start: 20041201, end: 20041203
  3. RIFATER (GALENIC /RIFAMPICIN/ISONIAZID/PYRAZINAMIDE/) [Suspect]
     Indication: PULMONARY TUBERCULOSIS
     Dosage: 6 DF, TOTAL DAILY, ORAL
     Route: 048
     Dates: start: 20041120, end: 20041204
  4. TOPALGIC [Concomitant]
  5. MYAMBUTOL [Concomitant]
  6. VITAMIN B1 AND B6 [Concomitant]
  7. PRIMPERAN TAB [Concomitant]
  8. AUGMENTIN '125' [Concomitant]
  9. PERFALGAN [Concomitant]
  10. TAZOCILLINE [Concomitant]

REACTIONS (4)
  - DELIRIUM [None]
  - DISEASE PROGRESSION [None]
  - NEUROPATHY PERIPHERAL [None]
  - TUBERCULOSIS [None]
